FAERS Safety Report 21788449 (Version 1)
Quarter: 2022Q4

REPORT INFORMATION
  Report Type: Spontaneous
  Country: US (occurrence: US)
  Receive Date: 20221228
  Receipt Date: 20221228
  Transmission Date: 20230112
  Serious: No
  Sender: FDA-Public Use
  Company Number: US-009507513-2212USA004370

PATIENT
  Age: 64 Year
  Sex: Female

DRUGS (5)
  1. TEMODAR [Suspect]
     Active Substance: TEMOZOLOMIDE
     Indication: Central nervous system lymphoma
     Dosage: UNK, INDUCTION REGIMEN
  2. METHOTREXATE [Concomitant]
     Active Substance: METHOTREXATE
     Indication: Central nervous system lymphoma
     Dosage: 8 MILLIGRAM/SQ. METER
  3. LEUCOVORIN [Concomitant]
     Active Substance: LEUCOVORIN
     Indication: Central nervous system lymphoma
     Dosage: UNK, ONCE EVERY 2 WEEKS
  4. RITUXIMAB [Concomitant]
     Active Substance: RITUXIMAB
     Indication: Central nervous system lymphoma
     Dosage: UNK, ONCE WEEKLY
     Route: 042
  5. DEXAMETHASONE [Concomitant]
     Active Substance: DEXAMETHASONE
     Dosage: STARTING DOSE: 4 MG, FLUCTUATED DOSAGE, ONCE DAILY

REACTIONS (1)
  - Product use in unapproved indication [Unknown]
